FAERS Safety Report 9190581 (Version 1)
Quarter: 2013Q1

REPORT INFORMATION
  Report Type: Report from Study
  Country: TR (occurrence: TR)
  Receive Date: 20130326
  Receipt Date: 20130326
  Transmission Date: 20140127
  Serious: Yes (Other)
  Sender: FDA-Public Use
  Company Number: TR-ROCHE-1205588

PATIENT
  Age: 67 Year
  Sex: 0

DRUGS (1)
  1. CAPECITABINE [Suspect]
     Indication: COLON CANCER
     Dosage: 500 MG 3X2
     Route: 048
     Dates: start: 20120607, end: 201303

REACTIONS (1)
  - Prostatic mass [Not Recovered/Not Resolved]
